FAERS Safety Report 24913352 (Version 2)
Quarter: 2025Q1

REPORT INFORMATION
  Report Type: Spontaneous
  Country: US (occurrence: US)
  Receive Date: 20250201
  Receipt Date: 20250215
  Transmission Date: 20250409
  Serious: No
  Sender: GRANULES PHARMACEUTICALS INC
  Company Number: US-GRANULES-US-2025GRASPO00035

PATIENT
  Age: 86 Year
  Sex: Female

DRUGS (1)
  1. ACETAMINOPHEN [Suspect]
     Active Substance: ACETAMINOPHEN
     Indication: Arthritis
     Dosage: 6 TABLETS A DAY, 2 IN BREAKFAST, 2 IN LUNCH AND 2 FOR SUPPER
     Route: 065
     Dates: start: 202401

REACTIONS (1)
  - Diarrhoea [Unknown]
